FAERS Safety Report 19772630 (Version 1)
Quarter: 2021Q3

REPORT INFORMATION
  Report Type: Spontaneous
  Country: GB (occurrence: GB)
  Receive Date: 20210901
  Receipt Date: 20210901
  Transmission Date: 20211014
  Serious: Yes (Other)
  Sender: FDA-Public Use
  Company Number: GB-MYLANLABS-2021M1057312

PATIENT
  Age: 21 Year
  Sex: Female
  Weight: 69.85 kg

DRUGS (2)
  1. NITROFURANTOIN. [Suspect]
     Active Substance: NITROFURANTOIN
     Indication: URINARY TRACT INFECTION
     Dosage: 100 MILLIGRAM
     Route: 048
     Dates: start: 20210514, end: 20210517
  2. MICROGYNON                         /00022701/ [Concomitant]
     Active Substance: ETHINYL ESTRADIOL\LEVONORGESTREL ACETATE
     Indication: ILL-DEFINED DISORDER
     Dosage: UNK

REACTIONS (4)
  - Illness [Recovered/Resolved]
  - Hyperhidrosis [Recovered/Resolved]
  - Dizziness [Recovered/Resolved]
  - Body temperature [Recovered/Resolved]

NARRATIVE: CASE EVENT DATE: 20210514
